FAERS Safety Report 23092551 (Version 1)
Quarter: 2023Q4

REPORT INFORMATION
  Report Type: Spontaneous
  Country: US (occurrence: US)
  Receive Date: 20231021
  Receipt Date: 20231021
  Transmission Date: 20240110
  Serious: No
  Sender: FDA-Public Use
  Company Number: US-drreddys-SPO/USA/23/0179074

PATIENT
  Age: 67 Year
  Sex: Female

DRUGS (1)
  1. CLOZAPINE [Suspect]
     Active Substance: CLOZAPINE
     Indication: Product used for unknown indication

REACTIONS (11)
  - Blood chloride decreased [Unknown]
  - Blood sodium decreased [Unknown]
  - Aspartate aminotransferase decreased [Unknown]
  - Protein total decreased [Unknown]
  - Anion gap decreased [Unknown]
  - Blood osmolarity decreased [Unknown]
  - Blood magnesium decreased [Unknown]
  - Blood urine present [Unknown]
  - Gamma-glutamyltransferase decreased [Unknown]
  - Creatinine urine decreased [Unknown]
  - Red blood cells urine positive [Unknown]

NARRATIVE: CASE EVENT DATE: 20211205
